FAERS Safety Report 12812866 (Version 1)
Quarter: 2016Q4

REPORT INFORMATION
  Report Type: Spontaneous
  Country: US (occurrence: US)
  Receive Date: 20161005
  Receipt Date: 20161005
  Transmission Date: 20170207
  Serious: No
  Sender: FDA-Public Use
  Company Number: US-AMGEN-USASP2016056637

PATIENT
  Age: 63 Year
  Sex: Female

DRUGS (1)
  1. PROLIA [Suspect]
     Active Substance: DENOSUMAB
     Indication: OSTEOPOROSIS
     Dosage: UNK
     Route: 065
     Dates: start: 201601

REACTIONS (6)
  - Myalgia [Unknown]
  - Back pain [Unknown]
  - Asthenia [Unknown]
  - Palpitations [Unknown]
  - Quality of life decreased [Unknown]
  - Fatigue [Unknown]
